FAERS Safety Report 9733300 (Version 1)
Quarter: 2013Q4

REPORT INFORMATION
  Report Type: Spontaneous
  Country: US (occurrence: None)
  Receive Date: 20131204
  Receipt Date: 20131204
  Transmission Date: 20140711
  Serious: Yes (Hospitalization)
  Sender: FDA-Public Use
  Company Number: None

PATIENT
  Age: 55 Year
  Sex: Male
  Weight: 25.32 kg

DRUGS (10)
  1. BEVACIZUMAB [Suspect]
     Dosage: 15 MG/KG, 100 MG IV?
     Route: 042
  2. CARBOPLATIN [Suspect]
     Dosage: 900 MG IV
     Route: 042
  3. PACLITAXEL [Suspect]
     Dosage: 384 MG IV
     Route: 042
  4. ALBUTEROL INHALER [Concomitant]
  5. ATROVENT NEBULIZER [Concomitant]
  6. MS CONTIN [Concomitant]
  7. TRAMADOL [Concomitant]
  8. COLACE [Concomitant]
  9. MUCINEX [Concomitant]
  10. OXYCODONE [Concomitant]

REACTIONS (3)
  - Cardio-respiratory arrest [None]
  - Haematemesis [None]
  - Haemoptysis [None]
